FAERS Safety Report 17130138 (Version 1)
Quarter: 2019Q4

REPORT INFORMATION
  Report Type: Spontaneous
  Country: AR (occurrence: AR)
  Receive Date: 20191209
  Receipt Date: 20191209
  Transmission Date: 20200122
  Serious: Yes (Disabling, Other)
  Sender: FDA-Public Use
  Company Number: AR-PFIZER INC-2019529161

PATIENT
  Age: 61 Year
  Sex: Female

DRUGS (1)
  1. TOFACITINIB CITRATE [Suspect]
     Active Substance: TOFACITINIB CITRATE
     Indication: RHEUMATOID ARTHRITIS
     Dosage: 5 MG, 2X/DAY
     Dates: start: 20180912

REACTIONS (5)
  - Thyroid disorder [Unknown]
  - Diabetes mellitus [Unknown]
  - Malaise [Unknown]
  - Tuberculin test positive [Unknown]
  - Pain [Unknown]

NARRATIVE: CASE EVENT DATE: 20190910
